FAERS Safety Report 8912043 (Version 1)
Quarter: 2012Q4

REPORT INFORMATION
  Report Type: 
  Country: BR (occurrence: BR)
  Receive Date: 20121116
  Receipt Date: 20121116
  Transmission Date: 20130627
  Serious: Yes (Other)
  Sender: FDA-Public Use
  Company Number: BR-ASTRAZENECA-2012SE85578

PATIENT
  Age: 616 Month
  Sex: Female

DRUGS (3)
  1. ANASTROZOLE [Suspect]
     Route: 048
     Dates: start: 200007, end: 200908
  2. TAMOXIFEN [Suspect]
     Route: 048
     Dates: start: 1994
  3. FULVESTRANT [Suspect]
     Indication: BREAST CANCER METASTATIC
     Dosage: 250 MG / 5 ML MONTHLY
     Route: 030
     Dates: start: 200907, end: 20111107

REACTIONS (2)
  - Pathological fracture [Unknown]
  - Hypersensitivity [Recovered/Resolved]
